FAERS Safety Report 4748649-0 (Version None)
Quarter: 2005Q3

REPORT INFORMATION
  Report Type: 
  Country: None (occurrence: None)
  Receive Date: 20050816
  Receipt Date: 20050729
  Transmission Date: 20060218
  Serious: Yes (Other)
  Sender: FDA-Public Use
  Company Number: WAES 0508USA00881

PATIENT
  Age: 14 Year
  Sex: Female

DRUGS (4)
  1. INJ ESPAR (ASPARGINASE) [Suspect]
     Indication: NON-HODGKIN'S LYMPHOMA
     Dosage: 1000 IU
  2. HEPARIN LOW MOLECULAR WEIGHT [Concomitant]
  3. PREDNISOLONE [Concomitant]
  4. VINCRISTINE SULFATE [Concomitant]

REACTIONS (9)
  - ACTIVATED PARTIAL THROMBOPLASTIN TIME SHORTENED [None]
  - ANTITHROMBIN III DECREASED [None]
  - BLOOD FIBRINOGEN DECREASED [None]
  - CEREBRAL INFARCTION [None]
  - CEREBRAL THROMBOSIS [None]
  - CONVULSION [None]
  - FIBRIN D DIMER INCREASED [None]
  - SUPERIOR SAGITTAL SINUS THROMBOSIS [None]
  - TRANSVERSE SINUS THROMBOSIS [None]
